FAERS Safety Report 15842897 (Version 1)
Quarter: 2019Q1

REPORT INFORMATION
  Report Type: Report from Study
  Country: ZA (occurrence: ZA)
  Receive Date: 20190118
  Receipt Date: 20190118
  Transmission Date: 20190417
  Serious: Yes (Hospitalization, Other)
  Sender: FDA-Public Use
  Company Number: ZA-SA-2019SA009321

PATIENT
  Age: 35 Year
  Sex: Female

DRUGS (3)
  1. OPTISULIN (INSULIN GLARGINE) [Suspect]
     Active Substance: INSULIN GLARGINE
     Dosage: 15 U, HS
     Dates: start: 20181129
  2. DIAGLUCIDE [Concomitant]
     Active Substance: GLICLAZIDE
     Dosage: 60 MG, QD (BEFORE BREAKFAST)
     Route: 065
     Dates: start: 20180627
  3. NO STUDY DRUG GIVEN [Suspect]
     Active Substance: UNSPECIFIED INGREDIENT
     Dosage: UNK

REACTIONS (3)
  - Intentional dose omission [Unknown]
  - Hospitalisation [Unknown]
  - Glycosylated haemoglobin increased [Unknown]
